FAERS Safety Report 8994626 (Version 1)
Quarter: 2012Q4

REPORT INFORMATION
  Report Type: Spontaneous
  Country: US (occurrence: None)
  Receive Date: 20121228
  Receipt Date: 20121228
  Transmission Date: 20130627
  Serious: Yes (Other)
  Sender: FDA-Public Use
  Company Number: None

PATIENT
  Age: 47 Year
  Sex: Male
  Weight: 90.72 kg

DRUGS (1)
  1. CARVEDILOL [Suspect]
     Indication: HEART ATTACK
     Route: 048
     Dates: start: 20120312, end: 20121226

REACTIONS (6)
  - Mental disorder [None]
  - Anxiety [None]
  - Depression [None]
  - Mood swings [None]
  - Thinking abnormal [None]
  - Abnormal behaviour [None]
